FAERS Safety Report 23996057 (Version 6)
Quarter: 2024Q4

REPORT INFORMATION
  Report Type: Spontaneous
  Country: US (occurrence: US)
  Receive Date: 20240620
  Receipt Date: 20241119
  Transmission Date: 20250115
  Serious: No
  Sender: ROCHE
  Company Number: US-ROCHE-3567745

PATIENT
  Age: 2 Year
  Sex: Male

DRUGS (3)
  1. HEMLIBRA [Suspect]
     Active Substance: EMICIZUMAB-KXWH
     Indication: Factor VIII deficiency
     Dosage: 30 MG/ML
     Route: 058
     Dates: start: 202311
  2. HEMLIBRA [Suspect]
     Active Substance: EMICIZUMAB-KXWH
     Route: 058
     Dates: start: 202311
  3. KOVALTRY [Concomitant]
     Active Substance: ANTIHEMOPHILIC FACTOR, HUMAN RECOMBINANT

REACTIONS (6)
  - Fall [Unknown]
  - Haemorrhage [Recovered/Resolved]
  - Dyspnoea [Unknown]
  - Asthma [Unknown]
  - Head injury [Unknown]
  - Weight decreased [Unknown]

NARRATIVE: CASE EVENT DATE: 20240106
